FAERS Safety Report 17008426 (Version 3)
Quarter: 2019Q4

REPORT INFORMATION
  Report Type: Report from Study
  Country: US (occurrence: US)
  Receive Date: 20191108
  Receipt Date: 20191222
  Transmission Date: 20200122
  Serious: No
  Sender: FDA-Public Use
  Company Number: US-AGIOS-1910US01464

PATIENT

DRUGS (1)
  1. TIBSOVO [Suspect]
     Active Substance: IVOSIDENIB
     Indication: ACUTE MYELOID LEUKAEMIA
     Dosage: 250 MILLIGRAM, 2 TABS (500MG), QD
     Route: 048
     Dates: start: 20180816, end: 20191212

REACTIONS (2)
  - White blood cell count decreased [Not Recovered/Not Resolved]
  - Treatment noncompliance [Unknown]
